FAERS Safety Report 8117330-2 (Version None)
Quarter: 2012Q1

REPORT INFORMATION
  Report Type: 
  Country: None (occurrence: None)
  Receive Date: 20120206
  Receipt Date: 20120126
  Transmission Date: 20120608
  Serious: Yes (Other)
  Sender: FDA-Public Use
  Company Number: US-ASTRAZENECA-2011SE65903

PATIENT
  Age: 59 Year
  Sex: Female

DRUGS (3)
  1. NEXIUM [Suspect]
     Route: 048
  2. NEXIUM [Suspect]
     Route: 048
  3. PRILOSEC OTC [Suspect]
     Route: 048

REACTIONS (14)
  - VOMITING [None]
  - CHEST DISCOMFORT [None]
  - DRUG INEFFECTIVE [None]
  - DRUG DOSE OMISSION [None]
  - HAEMOGLOBIN DECREASED [None]
  - HEADACHE [None]
  - MALAISE [None]
  - HAEMORRHAGE [None]
  - ABDOMINAL PAIN UPPER [None]
  - GASTROINTESTINAL HAEMORRHAGE [None]
  - FAECES DISCOLOURED [None]
  - DIARRHOEA [None]
  - INSOMNIA [None]
  - MUSCLE SPASMS [None]
